FAERS Safety Report 23022122 (Version 1)
Quarter: 2023Q4

REPORT INFORMATION
  Report Type: Spontaneous
  Country: US (occurrence: None)
  Receive Date: 20231003
  Receipt Date: 20231003
  Transmission Date: 20240110
  Serious: Yes (Other)
  Sender: FDA-Public Use
  Company Number: None

PATIENT
  Age: 51 Year
  Sex: Female

DRUGS (1)
  1. REPATHA [Suspect]
     Active Substance: EVOLOCUMAB
     Indication: Hyperlipidaemia
     Dosage: 140MG MONTHLY UNDER THE SKIN?
     Route: 050
     Dates: start: 20230915, end: 20231003

REACTIONS (3)
  - Fatigue [None]
  - Nausea [None]
  - Injection related reaction [None]

NARRATIVE: CASE EVENT DATE: 20230915
